FAERS Safety Report 13056492 (Version 1)
Quarter: 2016Q4

REPORT INFORMATION
  Report Type: Spontaneous
  Country: JP (occurrence: JP)
  Receive Date: 20161222
  Receipt Date: 20161222
  Transmission Date: 20170207
  Serious: Yes (Disabling)
  Sender: FDA-Public Use
  Company Number: JP-ELI_LILLY_AND_COMPANY-JP201611007862

PATIENT
  Age: 79 Year
  Sex: Female

DRUGS (5)
  1. SIGMART [Concomitant]
     Active Substance: NICORANDIL
     Dosage: UNK
     Route: 048
  2. IRBETAN [Concomitant]
     Active Substance: IRBESARTAN
     Dosage: 50 MG, QD
     Route: 048
  3. BENIDIPINE [Concomitant]
     Active Substance: BENIDIPINE
     Dosage: 4 MG, QD
     Route: 048
  4. FORTEO [Suspect]
     Active Substance: TERIPARATIDE
     Indication: PRODUCT USED FOR UNKNOWN INDICATION
     Dosage: UNK
     Route: 058
     Dates: start: 201608
  5. RABEPRAZOLE NA [Concomitant]
     Active Substance: RABEPRAZOLE SODIUM
     Dosage: 10 MG, QD
     Route: 048

REACTIONS (2)
  - Extrapyramidal disorder [Unknown]
  - Parkinsonism [Not Recovered/Not Resolved]

NARRATIVE: CASE EVENT DATE: 20160803
